FAERS Safety Report 8608521 (Version 3)
Quarter: 2014Q1

REPORT INFORMATION
  Report Type: Spontaneous
  Country: US (occurrence: US)
  Receive Date: 20120611
  Receipt Date: 20140123
  Transmission Date: 20141002
  Serious: Yes (Other)
  Sender: FDA-Public Use
  Company Number: US-ASTRAZENECA-2012SE36416

PATIENT
  Age: 789 Month
  Sex: Female
  Weight: 99.8 kg

DRUGS (15)
  1. NEXIUM [Suspect]
     Indication: GASTROOESOPHAGEAL REFLUX DISEASE
     Route: 048
     Dates: start: 20040820, end: 20111103
  2. NEXIUM [Suspect]
     Indication: GASTROOESOPHAGEAL REFLUX DISEASE
     Route: 048
     Dates: start: 20050826
  3. PAXIL [Concomitant]
  4. ZOCOR [Concomitant]
     Indication: BLOOD CHOLESTEROL
  5. FOSAMAX [Concomitant]
  6. VYTORIN [Concomitant]
     Indication: BLOOD CHOLESTEROL
  7. BUPROPION [Concomitant]
  8. LEXAPRO [Concomitant]
  9. PROMETRIUM [Concomitant]
     Indication: HORMONE REPLACEMENT THERAPY
     Dates: start: 2004, end: 2011
  10. ESTRATEST [Concomitant]
     Indication: HORMONE REPLACEMENT THERAPY
     Dates: start: 2004, end: 2011
  11. CALCIUM [Concomitant]
  12. MULTIVITAMINS B [Concomitant]
  13. VITAMIN D [Concomitant]
  14. VITAMIN E [Concomitant]
  15. PHENTERMINE [Concomitant]

REACTIONS (8)
  - Spinal compression fracture [Unknown]
  - Lumbar vertebral fracture [Unknown]
  - Osteoporosis [Unknown]
  - Intervertebral disc degeneration [Unknown]
  - Spinal osteoarthritis [Unknown]
  - Fracture [Unknown]
  - Cataract [Unknown]
  - Spinal fracture [Unknown]
